FAERS Safety Report 5974002-8 (Version None)
Quarter: 2008Q4

REPORT INFORMATION
  Report Type: 
  Country: None (occurrence: None)
  Receive Date: 20081125
  Receipt Date: 20081112
  Transmission Date: 20090506
  Serious: Yes (Other)
  Sender: FDA-Public Use
  Company Number: 2008AL011458

PATIENT
  Age: 36 Year
  Sex: Female

DRUGS (3)
  1. DIAZEPAM TAB [Suspect]
     Indication: MUSCLE SPASMS
     Dosage: 5 MG; TID
     Dates: start: 20080905, end: 20080915
  2. DICLOFENAC SODIUM [Suspect]
     Indication: DRUG USE FOR UNKNOWN INDICATION
  3. REBOXETINE [Concomitant]

REACTIONS (4)
  - DISSOCIATION [None]
  - FEELING ABNORMAL [None]
  - HALLUCINATION, AUDITORY [None]
  - SUICIDAL IDEATION [None]
